FAERS Safety Report 4931947-5 (Version None)
Quarter: 2006Q1

REPORT INFORMATION
  Report Type: 
  Country: None (occurrence: None)
  Receive Date: 20060303
  Receipt Date: 20060227
  Transmission Date: 20060701
  Serious: Yes (Hospitalization)
  Sender: FDA-Public Use
  Company Number: US-MERCK-0603USA00001

PATIENT
  Age: 42 Year
  Sex: Female
  Weight: 118 kg

DRUGS (1)
  1. VIOXX [Suspect]
     Indication: FIBROMYALGIA
     Route: 048
     Dates: start: 20000201, end: 20000702

REACTIONS (3)
  - ARRHYTHMIA [None]
  - CHEST PAIN [None]
  - SLEEP APNOEA SYNDROME [None]
